FAERS Safety Report 18199697 (Version 2)
Quarter: 2020Q3

REPORT INFORMATION
  Report Type: Spontaneous
  Country: SK (occurrence: SK)
  Receive Date: 20200826
  Receipt Date: 20200916
  Transmission Date: 20201103
  Serious: Yes (Hospitalization, Other)
  Sender: FDA-Public Use
  Company Number: SK-SA-2019SA235783

PATIENT

DRUGS (7)
  1. LEVOCARNITINE. [Concomitant]
     Active Substance: LEVOCARNITINE
  2. LETROZOLE. [Suspect]
     Active Substance: LETROZOLE
     Indication: BREAST CANCER
     Dosage: UNK
  3. ADRIAMYCIN [Suspect]
     Active Substance: DOXORUBICIN HYDROCHLORIDE
     Indication: BREAST CANCER
     Dosage: 240 MG/M2
  4. COENZYME Q10+ [Concomitant]
  5. TRASTUZUMAB. [Suspect]
     Active Substance: TRASTUZUMAB
     Indication: BREAST CANCER
     Dosage: REPEATED CYCLES
     Route: 065
  6. DOCETAXEL. [Suspect]
     Active Substance: DOCETAXEL
     Indication: BREAST CANCER
     Dosage: REPEATED CYCLES
  7. CYCLOPHOSPHAMIDE. [Suspect]
     Active Substance: CYCLOPHOSPHAMIDE
     Indication: BREAST CANCER
     Dosage: REPEATED CYCLES

REACTIONS (21)
  - Cardiac failure chronic [Recovered/Resolved]
  - Spinal pain [Unknown]
  - Cardiac failure acute [Recovered/Resolved]
  - Oedema peripheral [Recovered/Resolved]
  - Condition aggravated [Recovered/Resolved]
  - Pulmonary hypertension [Recovered/Resolved]
  - Congestive cardiomyopathy [Recovering/Resolving]
  - Rales [Recovered/Resolved]
  - Fatigue [Recovered/Resolved]
  - Tachypnoea [Recovered/Resolved]
  - Dizziness [Recovered/Resolved]
  - Ejection fraction decreased [Recovered/Resolved]
  - Pulmonary congestion [Recovered/Resolved]
  - Heart sounds abnormal [Recovered/Resolved]
  - Cough [Recovering/Resolving]
  - Dyspnoea [Recovered/Resolved]
  - Obesity [Unknown]
  - Bundle branch block left [Not Recovered/Not Resolved]
  - Orthopnoea [Recovering/Resolving]
  - Ventricular hypokinesia [Recovering/Resolving]
  - Diastolic dysfunction [Not Recovered/Not Resolved]

NARRATIVE: CASE EVENT DATE: 201601
